FAERS Safety Report 8329000-6 (Version None)
Quarter: 2012Q2

REPORT INFORMATION
  Report Type: 
  Country: None (occurrence: None)
  Receive Date: 20120502
  Receipt Date: 20120418
  Transmission Date: 20120825
  Serious: Yes (Other)
  Sender: FDA-Public Use
  Company Number: CN-JNJFOC-20120413540

PATIENT
  Sex: Female

DRUGS (1)
  1. MICONAZOLE [Suspect]
     Indication: VAGINAL INFECTION
     Route: 067
     Dates: start: 20111218, end: 20111226

REACTIONS (2)
  - PRURITUS [None]
  - FLUSHING [None]
